FAERS Safety Report 19527474 (Version 6)
Quarter: 2022Q3

REPORT INFORMATION
  Report Type: Report from Study
  Country: US (occurrence: US)
  Receive Date: 20210713
  Receipt Date: 20220811
  Transmission Date: 20221027
  Serious: Yes (Other)
  Sender: FDA-Public Use
  Company Number: US-HORIZON THERAPEUTICS-HZN-2021-000215

PATIENT

DRUGS (5)
  1. TEPEZZA [Suspect]
     Active Substance: TEPROTUMUMAB-TRBW
     Indication: Endocrine ophthalmopathy
     Dosage: 660 MG, FIRST INFUSION
     Route: 042
     Dates: start: 20201217
  2. TEPEZZA [Suspect]
     Active Substance: TEPROTUMUMAB-TRBW
     Indication: Exophthalmos
     Dosage: 2ND INFUSION, 1320 MG
     Route: 042
  3. TEPEZZA [Suspect]
     Active Substance: TEPROTUMUMAB-TRBW
     Dosage: INFUSION
     Route: 042
     Dates: start: 20220607
  4. TEPEZZA [Suspect]
     Active Substance: TEPROTUMUMAB-TRBW
     Dosage: FOURTH INFUSION
     Route: 042
     Dates: start: 20220628
  5. TEPEZZA [Suspect]
     Active Substance: TEPROTUMUMAB-TRBW
     Dosage: INFUSION 5
     Route: 042
     Dates: start: 20220719

REACTIONS (16)
  - Type 1 diabetes mellitus [Not Recovered/Not Resolved]
  - Deafness [Unknown]
  - Ear discomfort [Unknown]
  - Nail bed disorder [Unknown]
  - Nail disorder [Unknown]
  - Alopecia [Unknown]
  - Nausea [Unknown]
  - Fatigue [Unknown]
  - Eye pain [Unknown]
  - Eye disorder [Unknown]
  - Autoimmune disorder [Unknown]
  - Condition aggravated [Unknown]
  - Latent autoimmune diabetes in adults [Unknown]
  - Sensitive skin [Unknown]
  - Injection site bruising [Unknown]
  - Herpes zoster [Unknown]

NARRATIVE: CASE EVENT DATE: 20220804
